FAERS Safety Report 10082119 (Version 1)
Quarter: 2014Q2

REPORT INFORMATION
  Report Type: Spontaneous
  Country: US (occurrence: None)
  Receive Date: 20140414
  Receipt Date: 20140414
  Transmission Date: 20141212
  Serious: No
  Sender: FDA-Public Use
  Company Number: None

PATIENT
  Age: 67 Year
  Sex: Female
  Weight: 83.92 kg

DRUGS (8)
  1. VALSARTAN-HCTZ [Suspect]
     Indication: HYPERTENSION
     Dosage: 160 12.5 MG?1 DAILY?MORNING?BY MOUTH
     Route: 048
     Dates: start: 20140213, end: 20140217
  2. TOPROL XL [Concomitant]
  3. DIOVAN HCT [Concomitant]
  4. CRESTOR [Concomitant]
  5. DEXILANT [Concomitant]
  6. PROAIR HFA [Concomitant]
  7. TYLENOL [Concomitant]
  8. MOTRIN [Concomitant]

REACTIONS (5)
  - Palpitations [None]
  - Nausea [None]
  - Dizziness [None]
  - Clumsiness [None]
  - Disturbance in attention [None]
